FAERS Safety Report 4957750-8 (Version None)
Quarter: 2006Q1

REPORT INFORMATION
  Report Type: 
  Country: None (occurrence: None)
  Receive Date: 20060324
  Receipt Date: 20060310
  Transmission Date: 20060701
  Serious: Yes (Hospitalization, Other)
  Sender: FDA-Public Use
  Company Number: A-JP2005-11160

PATIENT
  Age: 17 Year
  Sex: Female
  Weight: 48.9 kg

DRUGS (11)
  1. TRACLEER [Suspect]
     Indication: PULMONARY HYPERTENSION
     Dosage: 15.625 MG, BID, ORAL; 31.25 MG, BID, ORAL; 15.625 MG, BID, ORAL
     Route: 048
     Dates: start: 20050811, end: 20050910
  2. TRACLEER [Suspect]
     Indication: PULMONARY HYPERTENSION
     Dosage: 15.625 MG, BID, ORAL; 31.25 MG, BID, ORAL; 15.625 MG, BID, ORAL
     Route: 048
     Dates: start: 20050911, end: 20051108
  3. TRACLEER [Suspect]
     Indication: PULMONARY HYPERTENSION
     Dosage: 15.625 MG, BID, ORAL; 31.25 MG, BID, ORAL; 15.625 MG, BID, ORAL
     Route: 048
     Dates: start: 20051109, end: 20051116
  4. EPOPROSTENOL SODIUM (EPROSTENOL SODIUM) [Concomitant]
  5. SILDENAFIL CITRATE (SILDENAFIL CITRATE) [Concomitant]
  6. DIGOXIN [Concomitant]
  7. CILAZAPRIL (CILAZAPRIL) [Concomitant]
  8. FUROSEMIDE [Concomitant]
  9. SPRINOLACTONE (SPIRONOLACTONE) [Concomitant]
  10. PIMOBENDAN (PIMOBENDAN) [Concomitant]
  11. FERROUS CITRATE [Concomitant]

REACTIONS (7)
  - BLOOD ALKALINE PHOSPHATASE INCREASED [None]
  - BLOOD BILIRUBIN INCREASED [None]
  - BRAIN NATRIURETIC PEPTIDE INCREASED [None]
  - CARDIAC FAILURE [None]
  - DIARRHOEA [None]
  - LIVER FUNCTION TEST ABNORMAL [None]
  - MALAISE [None]
